FAERS Safety Report 6885863-2 (Version None)
Quarter: 2010Q3

REPORT INFORMATION
  Report Type: 
  Country: None (occurrence: None)
  Receive Date: 20100729
  Receipt Date: 20080708
  Transmission Date: 20110219
  Serious: No
  Sender: FDA-Public Use
  Company Number: US-PFIZER INC-2008056128

PATIENT
  Sex: Female
  Weight: 50 kg

DRUGS (5)
  1. CELEBREX [Suspect]
     Indication: ARTHRITIS
     Route: 048
     Dates: start: 20080601, end: 20080601
  2. CELEBREX [Suspect]
     Indication: OSTEOPOROSIS
  3. ISOSORBIDE [Concomitant]
  4. METOPROLOL TARTRATE [Concomitant]
  5. TRAMADOL HYDROCHLORIDE [Concomitant]

REACTIONS (5)
  - DRUG INEFFECTIVE [None]
  - FATIGUE [None]
  - HEADACHE [None]
  - NERVOUSNESS [None]
  - TINNITUS [None]
